FAERS Safety Report 15766742 (Version 1)
Quarter: 2018Q4

REPORT INFORMATION
  Report Type: Report from Study
  Country: US (occurrence: US)
  Receive Date: 20181227
  Receipt Date: 20181227
  Transmission Date: 20190205
  Serious: Yes (Hospitalization, Other)
  Sender: FDA-Public Use
  Company Number: US-SA-2018SA391993

PATIENT
  Age: 72 Year
  Sex: Male

DRUGS (1)
  1. INSULIN GLARGINE [Suspect]
     Active Substance: INSULIN GLARGINE
     Indication: DIABETES MELLITUS
     Dosage: 75 U, QD(EVENING)
     Route: 058

REACTIONS (6)
  - Dehydration [Recovered/Resolved]
  - Ventricular arrhythmia [Recovered/Resolved]
  - Delirium [Recovered/Resolved]
  - Anger [Recovered/Resolved]
  - Hypotension [Recovered/Resolved]
  - Blood glucose increased [Recovered/Resolved]
